FAERS Safety Report 8620193-X (Version None)
Quarter: 2012Q3

REPORT INFORMATION
  Report Type: 
  Country: None (occurrence: None)
  Receive Date: 20120824
  Receipt Date: 20120821
  Transmission Date: 20120928
  Serious: Yes (Life-Threatening, Hospitalization)
  Sender: FDA-Public Use
  Company Number: PHHY2012CH072464

PATIENT
  Age: 59 Year
  Sex: Female

DRUGS (4)
  1. TACROLIMUS [Suspect]
     Indication: RENAL TRANSPLANT
  2. AZATHIOPRINE SODIUM [Concomitant]
     Indication: RENAL TRANSPLANT
  3. CYCLOSPORINE [Concomitant]
     Indication: RENAL TRANSPLANT
  4. BASILIXIMAB [Concomitant]
     Indication: RENAL TRANSPLANT
     Dosage: 20 MG, QD

REACTIONS (16)
  - ELECTROLYTE IMBALANCE [None]
  - INCORRECT DOSE ADMINISTERED [None]
  - PARAESTHESIA [None]
  - URINARY INCONTINENCE [None]
  - TRANSPLANT REJECTION [None]
  - GAIT DISTURBANCE [None]
  - HYPONATRAEMIA [None]
  - HYPOREFLEXIA [None]
  - DELIRIUM [None]
  - HYPERHIDROSIS [None]
  - GASTROINTESTINAL MOTILITY DISORDER [None]
  - DRUG LEVEL INCREASED [None]
  - TACHYCARDIA [None]
  - POLYNEUROPATHY [None]
  - HYPERTENSION [None]
  - AUTONOMIC NERVOUS SYSTEM IMBALANCE [None]
